FAERS Safety Report 17255211 (Version 1)
Quarter: 2020Q1

REPORT INFORMATION
  Report Type: Report from Study
  Country: GB (occurrence: GB)
  Receive Date: 20200110
  Receipt Date: 20200110
  Transmission Date: 20200409
  Serious: Yes (Other)
  Sender: FDA-Public Use
  Company Number: GB-BRISTOL-MYERS SQUIBB COMPANY-BMS-2020-000935

PATIENT
  Sex: Female

DRUGS (1)
  1. ABATACEPT [Suspect]
     Active Substance: ABATACEPT
     Indication: PSORIATIC ARTHROPATHY
     Dosage: 125 MILLIGRAM, QWK
     Route: 058
     Dates: start: 201910

REACTIONS (7)
  - Dry mouth [Unknown]
  - Device issue [Unknown]
  - Anaphylactic reaction [Unknown]
  - Dysgeusia [Unknown]
  - Pallor [Unknown]
  - Injection site haemorrhage [Unknown]
  - Dizziness [Unknown]
